FAERS Safety Report 6463107-3 (Version None)
Quarter: 2009Q4

REPORT INFORMATION
  Report Type: 
  Country: None (occurrence: None)
  Receive Date: 20091123
  Receipt Date: 20091116
  Transmission Date: 20100525
  Serious: Yes (Death)
  Sender: FDA-Public Use
  Company Number: 2009020517

PATIENT
  Age: 55 Year
  Sex: Female

DRUGS (5)
  1. NUVIGIL [Suspect]
     Indication: SOMNOLENCE
     Dosage: ORAL
     Route: 048
  2. CYMBALTA [Concomitant]
  3. LYRICA [Concomitant]
  4. XANAX [Concomitant]
  5. DURAGESIC (PARACETAMOL, ORPHENADRINE CITRATE) [Concomitant]

REACTIONS (1)
  - OVERDOSE [None]
